FAERS Safety Report 18857680 (Version 2)
Quarter: 2021Q1

REPORT INFORMATION
  Report Type: Other
  Country: EG (occurrence: EG)
  Receive Date: 20210208
  Receipt Date: 20210210
  Transmission Date: 20210420
  Serious: Yes (Other)
  Sender: FDA-Public Use
  Company Number: EG-ROCHE-2759634

PATIENT
  Sex: Female
  Weight: 47 kg

DRUGS (1)
  1. OCREVUS [Suspect]
     Active Substance: OCRELIZUMAB
     Indication: MULTIPLE SCLEROSIS
     Dosage: ONGOING
     Route: 042
     Dates: start: 20210103

REACTIONS (9)
  - Feeding disorder [Unknown]
  - Hypotension [Unknown]
  - Tachycardia [Not Recovered/Not Resolved]
  - Visual impairment [Unknown]
  - Abdominal pain upper [Not Recovered/Not Resolved]
  - Muscle twitching [Not Recovered/Not Resolved]
  - Syncope [Not Recovered/Not Resolved]
  - Dyspnoea [Not Recovered/Not Resolved]
  - Headache [Not Recovered/Not Resolved]

NARRATIVE: CASE EVENT DATE: 20210103
